FAERS Safety Report 5679279-4 (Version None)
Quarter: 2008Q1

REPORT INFORMATION
  Report Type: 
  Country: None (occurrence: None)
  Receive Date: 20080321
  Receipt Date: 20080307
  Transmission Date: 20080703
  Serious: Yes (Death)
  Sender: FDA-Public Use
  Company Number: S08-DEN-00939-01

PATIENT
  Age: 36 Year
  Sex: Female

DRUGS (5)
  1. AKARIN (CITALOPRAM) [Suspect]
     Indication: DEPRESSION
     Dosage: 60 MG QD PO
     Route: 048
     Dates: start: 20010601
  2. SEROQUEL [Suspect]
  3. DELEPSINE (VALPROATE SODIUM) [Suspect]
     Dosage: 1000 MG QD PO
     Route: 048
  4. LAMICTAL [Suspect]
     Dosage: 350 MG QD PO
     Route: 048
  5. MINULET (FEMODENE) [Suspect]
     Indication: ORAL CONTRACEPTION
     Dosage: 1 TABLET QD PO
     Route: 048

REACTIONS (10)
  - CARDIAC ARREST [None]
  - DRUG INTERACTION [None]
  - DRUG LEVEL INCREASED [None]
  - DRUG TOXICITY [None]
  - ENCEPHALITIS [None]
  - MALAISE [None]
  - NO THERAPEUTIC RESPONSE [None]
  - PALPITATIONS [None]
  - TACHYCARDIA [None]
  - THYROIDITIS [None]
